FAERS Safety Report 9332700 (Version 2)
Quarter: 2013Q3

REPORT INFORMATION
  Report Type: Report from Study
  Country: US (occurrence: US)
  Receive Date: 20130606
  Receipt Date: 20130716
  Transmission Date: 20140515
  Serious: Yes (Other)
  Sender: FDA-Public Use
  Company Number: PHEH2013US012171

PATIENT
  Age: 53 Year
  Sex: Female

DRUGS (5)
  1. GILENYA [Suspect]
     Indication: MULTIPLE SCLEROSIS
     Dosage: 0.5 MG, QD
     Route: 048
     Dates: start: 20130603
  2. NUVIGIL [Concomitant]
     Dosage: 250 MG, QD
     Route: 048
  3. PAXIL [Concomitant]
     Indication: HOT FLUSH
     Dosage: 10 MG, QD
  4. PRILOSEC [Concomitant]
  5. PROTONIX [Concomitant]

REACTIONS (2)
  - Blood pressure decreased [Recovering/Resolving]
  - Heart rate decreased [Unknown]
